FAERS Safety Report 8760629 (Version 4)
Quarter: 2014Q2

REPORT INFORMATION
  Report Type: Spontaneous
  Country: US (occurrence: None)
  Receive Date: 20120821
  Receipt Date: 20140521
  Transmission Date: 20141212
  Serious: Yes (Other)
  Sender: FDA-Public Use
  Company Number: JPI-P-023819

PATIENT
  Age: 74 Year
  Sex: Male
  Weight: 87.1 kg

DRUGS (8)
  1. XYREM [Suspect]
     Indication: SLEEP DISORDER
     Route: 048
     Dates: start: 200307
  2. XYREM [Suspect]
     Indication: INSOMNIA
     Route: 048
     Dates: start: 200307
  3. LUNESTA [Suspect]
     Indication: PRODUCT USED FOR UNKNOWN INDICATION
  4. AMBIEN [Suspect]
     Indication: SLEEP DISORDER
  5. KLONOPIN [Suspect]
     Indication: SLEEP DISORDER
     Dosage: 1MG, THREE TABLETS QD
  6. CRESTOR (ROSUVASTATIN CALCIUM) [Concomitant]
  7. COUMADIN (WARFARIN SODIUM) [Concomitant]
  8. PEPCID (FAMOTIDINE) [Concomitant]

REACTIONS (5)
  - B-cell lymphoma [None]
  - Amnesia [None]
  - Therapeutic response decreased [None]
  - Off label use [None]
  - Weight decreased [None]
